FAERS Safety Report 17280053 (Version 1)
Quarter: 2020Q1

REPORT INFORMATION
  Report Type: Spontaneous
  Country: US (occurrence: US)
  Receive Date: 20200117
  Receipt Date: 20200117
  Transmission Date: 20200409
  Serious: No
  Sender: FDA-Public Use
  Company Number: US-CELGENEUS-USA-20200104546

PATIENT
  Sex: Female
  Weight: 77.18 kg

DRUGS (4)
  1. REVLIMID [Suspect]
     Active Substance: LENALIDOMIDE
     Indication: PLASMA CELL MYELOMA
     Dosage: 25 MILLIGRAM
     Route: 048
     Dates: start: 200904
  2. REVLIMID [Suspect]
     Active Substance: LENALIDOMIDE
     Dosage: 15 MILLIGRAM
     Route: 048
     Dates: start: 20170717
  3. REVLIMID [Suspect]
     Active Substance: LENALIDOMIDE
     Dosage: 15-25 MILLIGRAMS
     Route: 048
     Dates: start: 201002
  4. REVLIMID [Suspect]
     Active Substance: LENALIDOMIDE
     Dosage: 10 MILLIGRAM
     Route: 048
     Dates: start: 201803

REACTIONS (2)
  - Product dose omission [Unknown]
  - Diarrhoea [Recovered/Resolved]
